FAERS Safety Report 8318346-3 (Version None)
Quarter: 2012Q2

REPORT INFORMATION
  Report Type: 
  Country: None (occurrence: None)
  Receive Date: 20120427
  Receipt Date: 20120420
  Transmission Date: 20120825
  Serious: No
  Sender: FDA-Public Use
  Company Number: AR-JNJFOC-20110912278

PATIENT
  Sex: Female
  Weight: 68.2 kg

DRUGS (11)
  1. DIAZEPAM [Concomitant]
     Route: 048
     Dates: start: 20080402
  2. FOLIC ACID [Concomitant]
     Route: 048
     Dates: start: 20101028
  3. ALL OTHER THERAPEUTIC PRODUCT [Concomitant]
     Route: 048
     Dates: start: 20110610
  4. GOLIMUMAB [Suspect]
     Indication: RHEUMATOID ARTHRITIS
     Route: 058
     Dates: start: 20070416
  5. METHOTREXATE [Concomitant]
     Route: 048
     Dates: start: 20101028
  6. METHOTREXATE [Concomitant]
     Route: 048
     Dates: start: 20100823, end: 20101008
  7. METHOTREXATE [Suspect]
     Indication: RHEUMATOID ARTHRITIS
     Route: 048
     Dates: start: 20070416, end: 20110922
  8. HALOPERIDOL [Concomitant]
     Route: 048
     Dates: start: 20080402
  9. GOLIMUMAB [Suspect]
     Route: 058
     Dates: start: 20110901
  10. FOLIC ACID [Concomitant]
     Route: 048
     Dates: start: 20100823, end: 20101008
  11. CLONAZEPAM [Concomitant]
     Route: 048
     Dates: start: 20100627

REACTIONS (3)
  - GESTATIONAL DIABETES [None]
  - METRORRHAGIA [None]
  - MATERNAL EXPOSURE DURING PREGNANCY [None]
